FAERS Safety Report 10389028 (Version 1)
Quarter: 2014Q1

REPORT INFORMATION
  Report Type: Spontaneous
  Country: US (occurrence: None)
  Receive Date: 20140306
  Receipt Date: 20140306
  Transmission Date: 20141002
  Serious: Yes (Other)
  Sender: FDA-Public Use
  Company Number: 163-21880-13103016

PATIENT
  Age: 57 Year
  Sex: Male

DRUGS (4)
  1. REVLIMID [Suspect]
     Indication: PLASMA CELL MYELOMA
     Dosage: PERMANENTLY DISCONTINUED; 21 IN 21 D
     Dates: start: 20101011
  2. PROCHLORPERAZINE MALEATE (PROCHLORPERAZINE MALEATE) [Concomitant]
  3. ONDANSETRON HCL (ONDANSETRON HYDROCHLORIDE) [Concomitant]
  4. MORPHINE SULFATE (MORPHINE SULFATE) [Concomitant]

REACTIONS (1)
  - Plasma cell myeloma [None]
